FAERS Safety Report 26046081 (Version 1)
Quarter: 2025Q4

REPORT INFORMATION
  Report Type: Spontaneous
  Country: US (occurrence: US)
  Receive Date: 20251114
  Receipt Date: 20251114
  Transmission Date: 20260118
  Serious: No
  Sender: TORRENT PHARMA INC.
  Company Number: US-TORRENT-00014597

PATIENT
  Age: 69 Year
  Sex: Male

DRUGS (1)
  1. VENXXIVA [Suspect]
     Active Substance: TIOPRONIN
     Indication: Cystinuria
     Route: 048
     Dates: start: 20251020

REACTIONS (4)
  - Pollakiuria [Recovered/Resolved]
  - Decreased appetite [Recovered/Resolved]
  - Oedema peripheral [Recovered/Resolved]
  - Intentional product use issue [Unknown]

NARRATIVE: CASE EVENT DATE: 20251027
